FAERS Safety Report 8050658-3 (Version None)
Quarter: 2012Q1

REPORT INFORMATION
  Report Type: 
  Country: None (occurrence: None)
  Receive Date: 20120117
  Receipt Date: 20120112
  Transmission Date: 20120608
  Serious: Yes (Life-Threatening, Hospitalization, Other)
  Sender: FDA-Public Use
  Company Number: GR-ROXANE LABORATORIES, INC.-2012-RO-00468RO

PATIENT
  Age: 26 Year
  Sex: Female

DRUGS (3)
  1. ALCOHOL [Suspect]
  2. LEVOMEPROMAZINE [Suspect]
  3. DIAZEPAM [Suspect]

REACTIONS (3)
  - LOSS OF CONSCIOUSNESS [None]
  - COMPARTMENT SYNDROME [None]
  - DEEP VEIN THROMBOSIS [None]
